FAERS Safety Report 13821018 (Version 2)
Quarter: 2017Q3

REPORT INFORMATION
  Report Type: Spontaneous
  Country: CH (occurrence: CH)
  Receive Date: 20170801
  Receipt Date: 20170918
  Transmission Date: 20171127
  Serious: Yes (Hospitalization)
  Sender: FDA-Public Use
  Company Number: CH-SUNOVION-2017SUN003347

PATIENT
  Sex: Male
  Weight: 130 kg

DRUGS (3)
  1. LATUDA [Suspect]
     Active Substance: LURASIDONE HYDROCHLORIDE
     Dosage: 120 MG, UNK
     Route: 048
  2. SOLIAN [Concomitant]
     Active Substance: AMISULPRIDE
  3. LATUDA [Suspect]
     Active Substance: LURASIDONE HYDROCHLORIDE
     Indication: SCHIZOPHRENIA
     Dosage: 80 MG, UNK
     Route: 048

REACTIONS (6)
  - Hallucination, auditory [Unknown]
  - Schizophrenia [Unknown]
  - Off label use [Unknown]
  - Delusion [Unknown]
  - Obesity [Unknown]
  - Drug ineffective [Unknown]
